FAERS Safety Report 15989421 (Version 12)
Quarter: 2020Q2

REPORT INFORMATION
  Report Type: Spontaneous
  Country: US (occurrence: US)
  Receive Date: 20190221
  Receipt Date: 20200611
  Transmission Date: 20200713
  Serious: Yes (Hospitalization, Other)
  Sender: FDA-Public Use
  Company Number: US-PFIZER INC-2019074639

PATIENT
  Age: 81 Year
  Sex: Male
  Weight: 86.17 kg

DRUGS (9)
  1. PREDNISONE. [Concomitant]
     Active Substance: PREDNISONE
     Dosage: 10 MG, UNK
     Dates: start: 1980
  2. ASPIRIN EC [Concomitant]
     Active Substance: ASPIRIN
     Dosage: 81 MG, UNK (LOW DOSE)
     Dates: start: 2019, end: 2019
  3. VITAMIN D3 [Concomitant]
     Active Substance: CHOLECALCIFEROL
     Dosage: 10000 IU, UNK
     Dates: start: 2017
  4. MULTIVITAMINS [VITAMINS NOS] [Concomitant]
     Active Substance: VITAMINS
     Dosage: UNK
     Dates: start: 2017
  5. GENOTROPIN [Suspect]
     Active Substance: SOMATROPIN
     Dosage: 0.5 MG, DAILY
     Route: 058
     Dates: start: 201902
  6. GENOTROPIN [Suspect]
     Active Substance: SOMATROPIN
     Dosage: 0.5 MG, DAILY
     Route: 058
     Dates: start: 20190301
  7. SYNTHROID [Concomitant]
     Active Substance: LEVOTHYROXINE SODIUM
     Dosage: 100 UG, UNK
     Dates: start: 1980
  8. GENOTROPIN [Suspect]
     Active Substance: SOMATROPIN
     Indication: HYPOPITUITARISM
     Dosage: 0.5 MG, DAILY
     Route: 058
     Dates: start: 2017
  9. GENOTROPIN [Suspect]
     Active Substance: SOMATROPIN
     Indication: BLOOD GROWTH HORMONE
     Dosage: 0.5 MG, DAILY
     Route: 058
     Dates: start: 201902

REACTIONS (8)
  - Drug dose omission by device [Unknown]
  - Spinal fracture [Recovering/Resolving]
  - Sluggishness [Not Recovered/Not Resolved]
  - Skin laceration [Unknown]
  - Device breakage [Unknown]
  - Irritability [Not Recovered/Not Resolved]
  - Fall [Recovering/Resolving]
  - Device use error [Unknown]

NARRATIVE: CASE EVENT DATE: 201905
